FAERS Safety Report 16826067 (Version 1)
Quarter: 2019Q3

REPORT INFORMATION
  Report Type: Report from Study
  Country: US (occurrence: US)
  Receive Date: 20190919
  Receipt Date: 20190919
  Transmission Date: 20191005
  Serious: Yes (Other)
  Sender: FDA-Public Use
  Company Number: US-TAKEDA-2019TUS045842

PATIENT
  Sex: Male

DRUGS (2)
  1. PONATINIB [Suspect]
     Active Substance: PONATINIB
     Dosage: 45 MILLIGRAM, QOD
     Route: 048
  2. PONATINIB [Suspect]
     Active Substance: PONATINIB
     Indication: CHRONIC MYELOID LEUKAEMIA
     Dosage: 45 MILLIGRAM, QD
     Route: 048
     Dates: start: 20190715

REACTIONS (7)
  - Pallor [Unknown]
  - Duodenal ulcer [Unknown]
  - Pancytopenia [Unknown]
  - White blood cell count decreased [Unknown]
  - Upper gastrointestinal haemorrhage [Unknown]
  - Blast crisis in myelogenous leukaemia [Unknown]
  - Platelet count decreased [Unknown]
